FAERS Safety Report 5106979-7 (Version None)
Quarter: 2006Q3

REPORT INFORMATION
  Report Type: 
  Country: None (occurrence: None)
  Receive Date: 20060913
  Receipt Date: 20060906
  Transmission Date: 20061208
  Serious: Yes (Hospitalization, Disabling)
  Sender: FDA-Public Use
  Company Number: 200504206

PATIENT
  Age: 50 Year
  Sex: Female
  Weight: 49.5 kg

DRUGS (3)
  1. BOTOX [Suspect]
     Indication: SKIN WRINKLING
     Dosage: 33UNITS, INTRAMUSCULAR
     Route: 030
     Dates: start: 20050509
  2. ZANTAC [Concomitant]
  3. ADVAIR DISKUS 100/50 [Concomitant]

REACTIONS (24)
  - ABDOMINAL PAIN LOWER [None]
  - ACTIVITIES OF DAILY LIVING IMPAIRED [None]
  - ASTHMA [None]
  - CONDITION AGGRAVATED [None]
  - DEHYDRATION [None]
  - DEPRESSED MOOD [None]
  - DEPRESSION [None]
  - DRUG HYPERSENSITIVITY [None]
  - DRUG INEFFECTIVE [None]
  - FACIAL PARESIS [None]
  - FATIGUE [None]
  - GASTROOESOPHAGEAL REFLUX DISEASE [None]
  - IMPAIRED WORK ABILITY [None]
  - INFLUENZA LIKE ILLNESS [None]
  - MIGRAINE [None]
  - MUSCLE DISORDER [None]
  - MUSCULOSKELETAL STIFFNESS [None]
  - PAIN [None]
  - PANCREATITIS [None]
  - SENSATION OF PRESSURE [None]
  - SKIN TIGHTNESS [None]
  - SOCIAL PROBLEM [None]
  - TACHYCARDIA [None]
  - WEIGHT DECREASED [None]
